FAERS Safety Report 8834188 (Version 1)
Quarter: 2012Q4

REPORT INFORMATION
  Report Type: 
  Country: US (occurrence: US)
  Receive Date: 20121010
  Receipt Date: 20121010
  Transmission Date: 20130627
  Serious: No
  Sender: FDA-Public Use
  Company Number: US-009507513-1210USA001869

PATIENT
  Sex: Female

DRUGS (3)
  1. PEGINTRON [Suspect]
     Indication: HEPATITIS C
     Dosage: 150 Microgram, qw
     Route: 058
     Dates: start: 20120331, end: 20120915
  2. RIBASPHERE [Suspect]
  3. TELAPREVIR [Suspect]
     Dosage: UNK
     Dates: start: 2012, end: 2012

REACTIONS (1)
  - No therapeutic response [Unknown]
